FAERS Safety Report 4610711-0 (Version None)
Quarter: 2005Q2

REPORT INFORMATION
  Report Type: 
  Country: None (occurrence: None)
  Receive Date: 20050228
  Receipt Date: 20040309
  Transmission Date: 20051028
  Serious: No
  Sender: FDA-Public Use
  Company Number: 205177

PATIENT
  Age: 11 Year
  Sex: Female
  Weight: 22 kg

DRUGS (1)
  1. NUTROPIN AQ [Suspect]
     Indication: RENAL FAILURE CHRONIC
     Dosage: 1.5MG, 6/WEEK,
     Dates: start: 20020909, end: 20040305

REACTIONS (1)
  - SLIPPED FEMORAL EPIPHYSIS [None]
